FAERS Safety Report 12589514 (Version 1)
Quarter: 2016Q3

REPORT INFORMATION
  Report Type: Spontaneous
  Country: US (occurrence: US)
  Receive Date: 20160725
  Receipt Date: 20160725
  Transmission Date: 20161109
  Serious: No
  Sender: FDA-Public Use
  Company Number: US-AMGEN-USASP2016094759

PATIENT
  Age: 62 Year
  Sex: Female

DRUGS (1)
  1. ENBREL [Suspect]
     Active Substance: ETANERCEPT
     Indication: ILL-DEFINED DISORDER
     Dosage: 50 MG, QWK
     Route: 058
     Dates: start: 2014, end: 201508

REACTIONS (4)
  - Malaise [Recovered/Resolved]
  - Sinusitis [Recovered/Resolved]
  - Bronchitis [Recovered/Resolved]
  - Off label use [Unknown]

NARRATIVE: CASE EVENT DATE: 2014
